FAERS Safety Report 6128687-6 (Version None)
Quarter: 2009Q1

REPORT INFORMATION
  Report Type: 
  Country: None (occurrence: None)
  Receive Date: 20090323
  Receipt Date: 20090311
  Transmission Date: 20090719
  Serious: Yes (Hospitalization)
  Sender: FDA-Public Use
  Company Number: AT-PFIZER INC-2009172218

PATIENT

DRUGS (18)
  1. GABAPENTIN [Suspect]
  2. AVELOX [Suspect]
     Route: 048
  3. LANSOPRAZOLE [Concomitant]
     Dosage: 15 MG, 2X/DAY
     Route: 048
  4. DANCOR [Concomitant]
     Dosage: 10 MG, UNK
  5. DEFLAMAT [Concomitant]
     Dosage: 500 MG, UNK
     Route: 048
  6. DEXAGENTA [Concomitant]
  7. FEDIP [Concomitant]
     Dosage: 60 MG, UNK
     Route: 048
  8. GUTTALAX [Concomitant]
     Dosage: 15 DROPS
     Route: 048
  9. HYDAL [Concomitant]
     Dosage: UNK MG, UNK
     Route: 048
  10. LACTULOSE [Concomitant]
     Route: 048
  11. LASIX [Concomitant]
     Dosage: 40 MG, UNK
     Route: 048
  12. NITRODERM [Concomitant]
     Dosage: 5 MG/24 HRS
  13. NOVALGIN [Concomitant]
     Route: 048
  14. PASPERTIN [Concomitant]
     Route: 048
  15. SELOKEN [Concomitant]
     Dosage: 47,5 MG
     Route: 048
  16. SINTROM [Concomitant]
     Route: 048
  17. SORTIS [Concomitant]
     Dosage: 10 MG, UNK
     Route: 048
  18. LORAZEPAM [Concomitant]
     Dosage: 2 MG, UNK
     Route: 048

REACTIONS (2)
  - DYSKINESIA [None]
  - NEUTROPENIA [None]
